FAERS Safety Report 5131927-3 (Version None)
Quarter: 2006Q4

REPORT INFORMATION
  Report Type: 
  Country: None (occurrence: None)
  Receive Date: 20061016
  Receipt Date: 20060622
  Transmission Date: 20070319
  Serious: Yes (Other)
  Sender: FDA-Public Use
  Company Number: 2006095455

PATIENT
  Age: 26 Year
  Sex: Female

DRUGS (1)
  1. BEXTRA [Suspect]
     Indication: BACK PAIN
     Dosage: (3 IN 1 D)
     Dates: start: 20031201, end: 20040301

REACTIONS (9)
  - ACUTE GENERALISED EXANTHEMATOUS PUSTULOSIS [None]
  - DERMATITIS [None]
  - DRUG ERUPTION [None]
  - DRUG EXPOSURE DURING PREGNANCY [None]
  - DRUG RASH WITH EOSINOPHILIA AND SYSTEMIC SYMPTOMS [None]
  - DYSHIDROSIS [None]
  - ERYTHEMA MULTIFORME [None]
  - PREGNANCY TEST POSITIVE [None]
  - STEVENS-JOHNSON SYNDROME [None]
